FAERS Safety Report 5034112-9 (Version None)
Quarter: 2006Q2

REPORT INFORMATION
  Report Type: 
  Country: None (occurrence: None)
  Receive Date: 20060626
  Receipt Date: 20060614
  Transmission Date: 20061013
  Serious: Yes (Other)
  Sender: FDA-Public Use
  Company Number: PHEH2006US07785

PATIENT
  Age: 65 Year
  Sex: Female

DRUGS (1)
  1. AREDIA [Suspect]
     Dates: start: 20051001

REACTIONS (3)
  - BONE MARROW TRANSPLANT [None]
  - TRANSPLANT [None]
  - TRANSPLANT REJECTION [None]
